FAERS Safety Report 4961736-7 (Version None)
Quarter: 2006Q1

REPORT INFORMATION
  Report Type: 
  Country: None (occurrence: None)
  Receive Date: 20060329
  Receipt Date: 20060316
  Transmission Date: 20060701
  Serious: Yes (Hospitalization, Other)
  Sender: FDA-Public Use
  Company Number: HQWYE356416MAR06

PATIENT
  Age: 3 Year
  Sex: Male

DRUGS (4)
  1. ADVIL [Suspect]
     Indication: PYREXIA
     Dosage: 1 DOSE FOR 16 KG EVERY 6 HOURS ORAL
     Route: 048
     Dates: start: 20051024, end: 20051025
  2. ADVIL [Suspect]
     Indication: PYREXIA
     Dosage: 1 DOSE FOR 16 KG EVERY 6 HOURS ORAL
     Route: 048
     Dates: start: 20051027, end: 20051027
  3. IBUPROFEN [Suspect]
     Dosage: UNKNOWN, ORAL
     Route: 048
     Dates: start: 20051027, end: 20051028
  4. ACETAMINOPHEN [Concomitant]

REACTIONS (3)
  - CONDITION AGGRAVATED [None]
  - INFECTION [None]
  - LUNG DISORDER [None]
